FAERS Safety Report 9521308 (Version 1)
Quarter: 2013Q3

REPORT INFORMATION
  Report Type: Spontaneous
  Country: DE (occurrence: None)
  Receive Date: 20130905
  Receipt Date: 20130905
  Transmission Date: 20140515
  Serious: Yes (Death)
  Sender: FDA-Public Use
  Company Number: 2013037748

PATIENT
  Age: 80 Year
  Sex: Male

DRUGS (9)
  1. PRIVIGEN (IMMUNE GLOBULIN INTRAVENOUS (HUMAN) 10% LIQUID) [Suspect]
     Indication: PLASMACYTOMA
     Dosage: 10 Q QD, INFUSION RATE: 0.25-1.33 ML/MIN,
     Dates: start: 20130213, end: 20130213
  2. DIGITOXIN (DIGITOXIN) [Concomitant]
  3. GLIMEPIRIDE (GLIMEPIRIDE) [Concomitant]
  4. TORASEMIDE (TORASEMIDE) [Concomitant]
  5. RAMIPRIL (RAMIPRIL) [Concomitant]
  6. ORAL ANTIDIABETICS (ORAL ANTIDIABETICS) [Concomitant]
  7. BISOPROLOL (BISOPROLOL) [Concomitant]
  8. ALL OTHER THERAPEUTIC PRODUCTS (ALL OTHER THERAPEUTIC PRODUCTS) [Concomitant]
  9. ACICLOVIR (ACICLOVIR) [Concomitant]

REACTIONS (1)
  - Death [None]
